FAERS Safety Report 7019904-9 (Version None)
Quarter: 2010Q3

REPORT INFORMATION
  Report Type: 
  Country: None (occurrence: None)
  Receive Date: 20100929
  Receipt Date: 20100916
  Transmission Date: 20110219
  Serious: Yes (Other)
  Sender: FDA-Public Use
  Company Number: AU-BAYER-201040342GPV

PATIENT
  Age: 37 Year
  Sex: Female

DRUGS (1)
  1. YAZ [Suspect]
     Indication: HIRSUTISM
     Route: 048
     Dates: start: 20100906, end: 20100913

REACTIONS (3)
  - CIRCULATORY COLLAPSE [None]
  - PYREXIA [None]
  - RASH [None]
